FAERS Safety Report 15811813 (Version 1)
Quarter: 2019Q1

REPORT INFORMATION
  Report Type: Spontaneous
  Country: US (occurrence: US)
  Receive Date: 20190111
  Receipt Date: 20190111
  Transmission Date: 20190417
  Serious: No
  Sender: FDA-Public Use
  Company Number: US-BAYER-2019-008712

PATIENT
  Age: 65 Year
  Sex: Male
  Weight: 159 kg

DRUGS (4)
  1. METADOL D [Concomitant]
  2. MORPHINE [Concomitant]
     Active Substance: MORPHINE
  3. FENTANYL. [Concomitant]
     Active Substance: FENTANYL
  4. MIRALAX [Suspect]
     Active Substance: POLYETHYLENE GLYCOL 3350
     Indication: GASTROINTESTINAL DISORDER
     Dosage: UNK
     Route: 048
     Dates: start: 201812

REACTIONS (1)
  - Product use issue [Unknown]

NARRATIVE: CASE EVENT DATE: 201812
